FAERS Safety Report 7545677-7 (Version None)
Quarter: 2011Q2

REPORT INFORMATION
  Report Type: 
  Country: None (occurrence: None)
  Receive Date: 20110614
  Receipt Date: 20110607
  Transmission Date: 20111010
  Serious: Yes (Death)
  Sender: FDA-Public Use
  Company Number: US-GILEAD-2011-0037705

PATIENT
  Sex: Female

DRUGS (3)
  1. LETAIRIS [Suspect]
     Indication: ESSENTIAL THROMBOCYTHAEMIA
  2. LETAIRIS [Suspect]
     Indication: PULMONARY HYPERTENSION
     Route: 048
     Dates: start: 20090728, end: 20110101
  3. LETAIRIS [Suspect]
     Indication: MYELODYSPLASTIC SYNDROME

REACTIONS (1)
  - PNEUMONIA [None]
